FAERS Safety Report 7126615-8 (Version None)
Quarter: 2010Q4

REPORT INFORMATION
  Report Type: 
  Country: None (occurrence: None)
  Receive Date: 20101129
  Receipt Date: 20101118
  Transmission Date: 20110411
  Serious: Yes (Other)
  Sender: FDA-Public Use
  Company Number: DE-GILEAD-2010-0033808

PATIENT
  Age: 76 Year
  Sex: Male

DRUGS (6)
  1. RANEXA [Suspect]
     Indication: CORONARY ARTERY DISEASE
     Route: 048
     Dates: start: 20101108, end: 20101112
  2. RANEXA [Suspect]
     Indication: ANGINA PECTORIS
  3. METFORMIN [Concomitant]
     Route: 048
  4. INSULIN [Concomitant]
     Route: 058
  5. RAMIPRIL [Concomitant]
     Route: 048
  6. METOPROLOL [Concomitant]
     Route: 048

REACTIONS (1)
  - RECTAL HAEMORRHAGE [None]
